FAERS Safety Report 5075535-1 (Version None)
Quarter: 2006Q3

REPORT INFORMATION
  Report Type: 
  Country: None (occurrence: None)
  Receive Date: 20060714
  Receipt Date: 20060315
  Transmission Date: 20061208
  Serious: No
  Sender: FDA-Public Use
  Company Number: 2006SP001235

PATIENT
  Age: 69 Year
  Sex: Male

DRUGS (5)
  1. LUNESTA [Suspect]
     Indication: INSOMNIA
     Dosage: 2 MG;HS;ORAL
     Route: 048
     Dates: start: 20060301, end: 20060301
  2. FOLIC ACID [Concomitant]
  3. SIMVASTATIN [Concomitant]
  4. TEMAZEPAM [Concomitant]
  5. ASCORBIC ACID [Concomitant]

REACTIONS (2)
  - TONGUE DISCOLOURATION [None]
  - TONGUE OEDEMA [None]
